FAERS Safety Report 7393251-8 (Version None)
Quarter: 2011Q2

REPORT INFORMATION
  Report Type: 
  Country: None (occurrence: None)
  Receive Date: 20110405
  Receipt Date: 20110325
  Transmission Date: 20111010
  Serious: Yes (Hospitalization)
  Sender: FDA-Public Use
  Company Number: US-BIOGENIDEC-2011BI009675

PATIENT
  Age: 52 Year
  Sex: Female

DRUGS (1)
  1. TYSABRI [Suspect]
     Indication: MULTIPLE SCLEROSIS
     Route: 042
     Dates: start: 20100816

REACTIONS (5)
  - PAIN IN EXTREMITY [None]
  - LOSS OF CONSCIOUSNESS [None]
  - COUGH [None]
  - INFECTION [None]
  - BLOOD SODIUM DECREASED [None]
